FAERS Safety Report 6928832-6 (Version None)
Quarter: 2010Q3

REPORT INFORMATION
  Report Type: 
  Country: None (occurrence: None)
  Receive Date: 20100809
  Receipt Date: 20091029
  Transmission Date: 20110219
  Serious: No
  Sender: FDA-Public Use
  Company Number: US-001087

PATIENT
  Sex: Male

DRUGS (3)
  1. DEGARELIX 240 MG [Suspect]
     Indication: PRODUCT USED FOR UNKNOWN INDICATION
     Dosage: 240 MG 1X/MONTH SUBCUTANEOUS
     Route: 058
     Dates: start: 20091026, end: 20091028
  2. TORADOL [Concomitant]
  3. BENADRYL [Concomitant]

REACTIONS (7)
  - DECREASED APPETITE [None]
  - DIARRHOEA [None]
  - INJECTION SITE SWELLING [None]
  - INJECTION SITE WARMTH [None]
  - NAUSEA [None]
  - PAIN [None]
  - VOMITING [None]
